FAERS Safety Report 10649708 (Version 1)
Quarter: 2014Q4

REPORT INFORMATION
  Report Type: Spontaneous
  Country: FR (occurrence: FR)
  Receive Date: 20141212
  Receipt Date: 20141212
  Transmission Date: 20150529
  Serious: Yes (Hospitalization)
  Sender: FDA-Public Use
  Company Number: FR-BAXTER-2014BAX071947

PATIENT
  Age: 68 Year
  Sex: Female

DRUGS (18)
  1. ENDOXAN 1000 MG, POUDRE POUR SOLUTION INJECTABLE [Suspect]
     Active Substance: CYCLOPHOSPHAMIDE
     Dosage: FOURTH COURSE
     Route: 042
     Dates: start: 20140909, end: 20140909
  2. ENDOXAN 1000 MG, POUDRE POUR SOLUTION INJECTABLE [Suspect]
     Active Substance: CYCLOPHOSPHAMIDE
     Dosage: THIRD COURSE
     Route: 042
     Dates: start: 20140818, end: 20140818
  3. DOXORUBICINE ACTAVIS [Suspect]
     Active Substance: DOXORUBICIN
     Dosage: SECOND COURSE
     Route: 042
     Dates: start: 20140728, end: 20140728
  4. DOCETAXEL ACCORD [Suspect]
     Active Substance: DOCETAXEL
     Dosage: FIFTH COURSE
     Route: 042
     Dates: start: 20140929, end: 20140929
  5. ATORVASTATINE [Concomitant]
     Active Substance: ATORVASTATIN
     Indication: PRODUCT USED FOR UNKNOWN INDICATION
     Route: 048
  6. ENDOXAN 1000 MG, POUDRE POUR SOLUTION INJECTABLE [Suspect]
     Active Substance: CYCLOPHOSPHAMIDE
     Dosage: FIFTH COURSE
     Route: 042
     Dates: start: 20140929, end: 20140929
  7. DOXORUBICINE ACTAVIS [Suspect]
     Active Substance: DOXORUBICIN
     Indication: PRODUCT USED FOR UNKNOWN INDICATION
     Dosage: FIRST COURSE
     Route: 042
     Dates: start: 20140707, end: 20140707
  8. AXELER [Concomitant]
     Active Substance: AMLODIPINE BESYLATE\OLMESARTAN MEDOXOMIL
     Indication: PRODUCT USED FOR UNKNOWN INDICATION
     Route: 048
  9. DOXORUBICINE ACTAVIS [Suspect]
     Active Substance: DOXORUBICIN
     Dosage: THIRD COURSE
     Route: 042
     Dates: start: 20140818, end: 20140818
  10. DOXORUBICINE ACTAVIS [Suspect]
     Active Substance: DOXORUBICIN
     Dosage: FOURTH COURSE
     Route: 042
     Dates: start: 20140909, end: 20140909
  11. ENDOXAN 1000 MG, POUDRE POUR SOLUTION INJECTABLE [Suspect]
     Active Substance: CYCLOPHOSPHAMIDE
     Indication: PRODUCT USED FOR UNKNOWN INDICATION
     Dosage: FIRST COURSE
     Route: 042
     Dates: start: 20140707, end: 20140707
  12. DOCETAXEL ACCORD [Suspect]
     Active Substance: DOCETAXEL
     Indication: PRODUCT USED FOR UNKNOWN INDICATION
     Dosage: FIRST COURSE
     Route: 042
     Dates: start: 20140707, end: 20140707
  13. TEMERIT DUO [Concomitant]
     Active Substance: HYDROCHLOROTHIAZIDE\NEBIVOLOL HYDROCHLORIDE
     Indication: PRODUCT USED FOR UNKNOWN INDICATION
     Route: 048
  14. ENDOXAN 1000 MG, POUDRE POUR SOLUTION INJECTABLE [Suspect]
     Active Substance: CYCLOPHOSPHAMIDE
     Dosage: SECOND COURSE
     Route: 042
     Dates: start: 20140728, end: 20140728
  15. DOXORUBICINE ACTAVIS [Suspect]
     Active Substance: DOXORUBICIN
     Dosage: FIFTH COURSE
     Route: 042
     Dates: start: 20140929, end: 20140929
  16. DOCETAXEL ACCORD [Suspect]
     Active Substance: DOCETAXEL
     Dosage: THIRD COURSE
     Route: 042
     Dates: start: 20140818, end: 20140818
  17. DOCETAXEL ACCORD [Suspect]
     Active Substance: DOCETAXEL
     Dosage: SECOND COURSE
     Route: 042
     Dates: start: 20140728, end: 20140728
  18. DOCETAXEL ACCORD [Suspect]
     Active Substance: DOCETAXEL
     Dosage: FOURTH COURSE
     Route: 042
     Dates: start: 20140909, end: 20140909

REACTIONS (3)
  - Dyspnoea [None]
  - Atrioventricular block second degree [Recovered/Resolved with Sequelae]
  - Ejection fraction decreased [None]

NARRATIVE: CASE EVENT DATE: 20141018
